FAERS Safety Report 18994308 (Version 4)
Quarter: 2024Q3

REPORT INFORMATION
  Report Type: Report from Study
  Country: US (occurrence: US)
  Receive Date: 20210311
  Receipt Date: 20240925
  Transmission Date: 20241017
  Serious: Yes (Other)
  Sender: ROCHE
  Company Number: US-ROCHE-2417517

PATIENT
  Age: 63 Year
  Sex: Female

DRUGS (7)
  1. CELLCEPT [Suspect]
     Active Substance: MYCOPHENOLATE MOFETIL
     Indication: Myasthenia gravis
     Route: 048
     Dates: start: 20130123
  2. CELLCEPT [Suspect]
     Active Substance: MYCOPHENOLATE MOFETIL
     Dosage: CELLCEPT 500MG 3 BID RECEIVED WRONG DOSE 500MG 1 BID
     Route: 048
  3. LEVOTHYROXINE SODIUM [Concomitant]
     Active Substance: LEVOTHYROXINE SODIUM
     Dosage: TAB TAKE 1 TAB BY MOUTH ONCE A DAY
     Dates: start: 20190524
  4. METFORMIN HYDROCHLORIDE [Concomitant]
     Active Substance: METFORMIN HYDROCHLORIDE
     Dosage: TAKE 1 TAB ONCE A DAY
     Route: 048
     Dates: start: 20180913
  5. ASPIRIN [Concomitant]
     Active Substance: ASPIRIN
     Dosage: TAKE 1 TAB ONCE A DAY
     Route: 048
     Dates: start: 20150218
  6. MESTINON [Concomitant]
     Active Substance: PYRIDOSTIGMINE BROMIDE
     Dosage: TAKE 1 TAB FOUR TIMES A DAY
     Route: 048
     Dates: start: 20130123
  7. CO Q 10 [UBIDECARENONE] [Concomitant]
     Route: 048
     Dates: start: 20190204

REACTIONS (9)
  - Bronchiectasis [Unknown]
  - Pneumonia [Unknown]
  - Skin lesion [Unknown]
  - Arteriosclerosis [Unknown]
  - Cholelithiasis [Unknown]
  - Emphysema [Unknown]
  - Granuloma [Unknown]
  - Off label use [Unknown]
  - Circumstance or information capable of leading to medication error [Unknown]

NARRATIVE: CASE EVENT DATE: 20150706
